FAERS Safety Report 13528369 (Version 1)
Quarter: 2017Q2

REPORT INFORMATION
  Report Type: Spontaneous
  Country: FR (occurrence: FR)
  Receive Date: 20170509
  Receipt Date: 20170509
  Transmission Date: 20170830
  Serious: Yes (Hospitalization, Congenital Anomaly, Other)
  Sender: FDA-Public Use
  Company Number: FR-INDIVIOR LIMITED-INDV-101310-2017

PATIENT
  Age: 0 Year
  Sex: Male

DRUGS (4)
  1. SUBUTEX [Suspect]
     Active Substance: BUPRENORPHINE HYDROCHLORIDE
     Indication: EPILEPSY
     Dosage: 4 MG, QD
     Route: 064
     Dates: start: 20140407, end: 20141219
  2. ALEPSAL /00023201/ [Suspect]
     Active Substance: PHENOBARBITAL
     Indication: EPILEPSY
     Dosage: 50 MG, QD (1 DF)
     Route: 064
     Dates: start: 20140407, end: 20141219
  3. DEPAKINE CHRONO [Suspect]
     Active Substance: VALPROATE SODIUM
     Indication: EPILEPSY
     Dosage: 500 MG, DIVISIBLE COATED TABLET PROLONGED-RELEASE
     Route: 064
     Dates: end: 20141219
  4. LAMICTAL [Suspect]
     Active Substance: LAMOTRIGINE
     Indication: EPILEPSY
     Dosage: 50 MG, 3 IN 1 DAY (3 DF)
     Route: 064
     Dates: start: 20140407, end: 20141219

REACTIONS (4)
  - Foetal anticonvulsant syndrome [Not Recovered/Not Resolved]
  - Agitation neonatal [Recovered/Resolved]
  - Foetal exposure during pregnancy [Recovered/Resolved]
  - Drug withdrawal syndrome neonatal [Recovered/Resolved]

NARRATIVE: CASE EVENT DATE: 20140407
